FAERS Safety Report 24273437 (Version 1)
Quarter: 2024Q3

REPORT INFORMATION
  Report Type: Spontaneous
  Country: TN (occurrence: TN)
  Receive Date: 20240902
  Receipt Date: 20240902
  Transmission Date: 20241017
  Serious: Yes (Other)
  Sender: UCB
  Company Number: TN-UCBSA-2024044339

PATIENT
  Age: 37 Year
  Sex: Female

DRUGS (2)
  1. CIMZIA [Suspect]
     Active Substance: CERTOLIZUMAB PEGOL
     Indication: Rheumatoid arthritis
     Dosage: 400 MILLIGRAM, LOADING DOSE S0, S2, S4, EV 2 WEEKS(QOW)
     Dates: start: 2023, end: 2023
  2. CIMZIA [Suspect]
     Active Substance: CERTOLIZUMAB PEGOL
     Dosage: 400 MILLIGRAM, MONTHLY (QM)
     Dates: start: 20230811, end: 20240519

REACTIONS (2)
  - Peritoneal tuberculosis [Not Recovered/Not Resolved]
  - Disseminated tuberculosis [Not Recovered/Not Resolved]

NARRATIVE: CASE EVENT DATE: 20240519
